FAERS Safety Report 25152869 (Version 2)
Quarter: 2025Q3

REPORT INFORMATION
  Report Type: Spontaneous
  Country: EU (occurrence: EU)
  Receive Date: 20250403
  Receipt Date: 20250802
  Transmission Date: 20251021
  Serious: Yes (Death)
  Sender: ALEXION PHARMACEUTICALS
  Company Number: EU-JNJFOC-20241236986

PATIENT
  Sex: Male
  Weight: 73 kg

DRUGS (5)
  1. OSIMERTINIB [Suspect]
     Active Substance: OSIMERTINIB
     Indication: Non-small cell lung cancer
     Route: 065
  2. RYBREVANT [Suspect]
     Active Substance: AMIVANTAMAB-VMJW
     Indication: Non-small cell lung cancer
     Route: 065
  3. RYBREVANT [Suspect]
     Active Substance: AMIVANTAMAB-VMJW
     Route: 065
  4. CARBOPLATIN [Suspect]
     Active Substance: CARBOPLATIN
     Indication: Non-small cell lung cancer
     Route: 065
  5. PEMETREXED [Suspect]
     Active Substance: PEMETREXED
     Indication: Non-small cell lung cancer
     Route: 065

REACTIONS (1)
  - Non-small cell lung cancer [Fatal]
